FAERS Safety Report 7918545-6 (Version None)
Quarter: 2011Q4

REPORT INFORMATION
  Report Type: 
  Country: None (occurrence: None)
  Receive Date: 20111116
  Receipt Date: 20111110
  Transmission Date: 20120403
  Serious: Yes (Other)
  Sender: FDA-Public Use
  Company Number: DE-CEPHALON-2011005812

PATIENT
  Sex: Male
  Weight: 79 kg

DRUGS (3)
  1. BENDAMUSTINE HCL [Suspect]
     Route: 042
     Dates: start: 20110907
  2. RITUXIMAB [Suspect]
     Route: 042
     Dates: start: 20110906
  3. ALLOPURINOL [Concomitant]
     Dates: start: 20110906, end: 20111010

REACTIONS (2)
  - PRURITUS [None]
  - EYELID OEDEMA [None]
